FAERS Safety Report 4730356-1 (Version None)
Quarter: 2005Q3

REPORT INFORMATION
  Report Type: 
  Country: None (occurrence: None)
  Receive Date: 20050729
  Receipt Date: 20050729
  Transmission Date: 20060218
  Serious: Yes (Hospitalization)
  Sender: FDA-Public Use
  Company Number: None

PATIENT
  Age: 67 Year
  Sex: Male
  Weight: 61.36 kg

DRUGS (9)
  1. BACTRIM DS [Suspect]
     Indication: PNEUMOCYSTIS JIROVECI PNEUMONIA
     Dosage: DS DAILY ORAL
     Route: 048
     Dates: start: 20050612, end: 20050718
  2. BACTRIM DS [Suspect]
     Indication: PROPHYLAXIS
     Dosage: DS DAILY ORAL
     Route: 048
     Dates: start: 20050612, end: 20050718
  3. ISONIAZID [Suspect]
     Indication: TUBERCULOSIS
     Dosage: 300 DAILY ORAL
     Route: 048
     Dates: start: 20050612, end: 20050718
  4. ETHAMBUTOL HYDROCHLORIDE [Concomitant]
  5. FLUCONAZOLE [Concomitant]
  6. PYRAZINAMIDE [Concomitant]
  7. PYRIDOXINE HCL [Concomitant]
  8. RIFAMPIN [Concomitant]
  9. THIAMINE [Concomitant]

REACTIONS (1)
  - STEVENS-JOHNSON SYNDROME [None]
